FAERS Safety Report 5406661-2 (Version None)
Quarter: 2007Q3

REPORT INFORMATION
  Report Type: 
  Country: None (occurrence: None)
  Receive Date: 20070806
  Receipt Date: 20070725
  Transmission Date: 20080115
  Serious: Yes (Other)
  Sender: FDA-Public Use
  Company Number: FR-PFIZER INC-2007064166

PATIENT
  Sex: Female
  Weight: 61 kg

DRUGS (2)
  1. VARENICLINE TABLETS [Suspect]
  2. ORAL CONTRACEPTIVE NOS [Concomitant]

REACTIONS (2)
  - ABORTION SPONTANEOUS [None]
  - UNINTENDED PREGNANCY [None]
